FAERS Safety Report 6781760-1 (Version None)
Quarter: 2010Q2

REPORT INFORMATION
  Report Type: 
  Country: None (occurrence: None)
  Receive Date: 20100621
  Receipt Date: 20100611
  Transmission Date: 20101027
  Serious: Yes (Hospitalization)
  Sender: FDA-Public Use
  Company Number: IE-NOVOPROD-310049

PATIENT
  Sex: Male

DRUGS (9)
  1. VICTOZA [Suspect]
     Indication: TYPE 2 DIABETES MELLITUS
     Dosage: 0.6 MG, QD
     Route: 058
     Dates: start: 20100521, end: 20100602
  2. COVERSYL PLUS [Concomitant]
     Indication: HYPERTENSION
  3. EMCOR [Concomitant]
     Indication: HYPERTENSION
     Dosage: 10MG
  4. CARDURA [Concomitant]
     Indication: HYPERTENSION
     Dosage: 4MG
  5. CARDURA [Concomitant]
     Indication: ANGINA PECTORIS
  6. NUSEALS [Concomitant]
     Indication: HYPERTENSION
  7. METFORMIN HYDROCHLORIDE [Concomitant]
     Indication: TYPE 2 DIABETES MELLITUS
     Dosage: 3 GRAMS
  8. DIAMICRON [Concomitant]
     Indication: HYPERTENSION
     Dosage: 120MG
  9. LIPITOR [Concomitant]
     Dosage: 20MG

REACTIONS (3)
  - HEPATITIS [None]
  - HEPATITIS ACUTE [None]
  - PANCREATIC NEOPLASM [None]
